FAERS Safety Report 9080215 (Version 2)
Quarter: 2013Q1

REPORT INFORMATION
  Report Type: Report from Study
  Country: US (occurrence: US)
  Receive Date: 20130130
  Receipt Date: 20130329
  Transmission Date: 20140127
  Serious: No
  Sender: FDA-Public Use
  Company Number: US-VERTEX PHARMACEUTICALS INC.-2013-001309

PATIENT
  Age: 61 Year
  Sex: Male
  Weight: 77 kg

DRUGS (3)
  1. VX-950 (TELAPREVIR) [Suspect]
     Indication: HEPATITIS C
     Dosage: 750 MG, TID
     Route: 048
     Dates: start: 20130105
  2. PEGASYS [Suspect]
     Indication: HEPATITIS C
     Dosage: 180 MCG/M
     Route: 058
  3. RIBASPHERE [Suspect]
     Indication: HEPATITIS C
     Dosage: UNK
     Route: 048

REACTIONS (8)
  - Influenza like illness [Not Recovered/Not Resolved]
  - Dizziness [Unknown]
  - Chills [Unknown]
  - Decreased appetite [Unknown]
  - Asthenia [Unknown]
  - Fatigue [Not Recovered/Not Resolved]
  - Rash [Unknown]
  - Anaemia [Unknown]
